FAERS Safety Report 24585839 (Version 3)
Quarter: 2024Q4

REPORT INFORMATION
  Report Type: Spontaneous
  Country: JP (occurrence: JP)
  Receive Date: 20241106
  Receipt Date: 20241222
  Transmission Date: 20250115
  Serious: Yes (Other)
  Sender: BRISTOL-MYERS SQUIBB COMPANY
  Company Number: JP-TAIHO-2024-010356

PATIENT
  Age: 7 Decade
  Sex: Male

DRUGS (1)
  1. ABRAXANE [Suspect]
     Active Substance: PACLITAXEL
     Indication: Non-small cell lung cancer
     Dosage: ON DAYS 1, 8, AND 15 OF EACH 21-DAY CYCLE?DAILY DOSE: 100 MILLIGRAM(S)/SQ. METER
     Route: 041

REACTIONS (2)
  - Macular oedema [Recovered/Resolved]
  - Neuropathy peripheral [Unknown]
